FAERS Safety Report 16661940 (Version 2)
Quarter: 2019Q3

REPORT INFORMATION
  Report Type: Not Available
  Country: US (occurrence: US)
  Receive Date: 20190802
  Receipt Date: 20190815
  Transmission Date: 20191004
  Serious: Yes (Hospitalization)
  Sender: FDA-Public Use
  Company Number: US-NEUROCRINE BIOSCIENCES INC.-2019NBI02083

PATIENT
  Sex: Male

DRUGS (3)
  1. INGREZZA [Suspect]
     Active Substance: VALBENAZINE
     Indication: TARDIVE DYSKINESIA
     Route: 048
     Dates: start: 20181024
  2. CLOZAPINE. [Concomitant]
     Active Substance: CLOZAPINE
     Route: 048
  3. CLOZAPINE. [Concomitant]
     Active Substance: CLOZAPINE
     Dosage: DOSE DECREASED
     Route: 048

REACTIONS (2)
  - Tardive dyskinesia [Unknown]
  - Resting tremor [Unknown]
